FAERS Safety Report 10214849 (Version 2)
Quarter: 2014Q2

REPORT INFORMATION
  Report Type: Spontaneous
  Country: US (occurrence: US)
  Receive Date: 20140603
  Receipt Date: 20140623
  Transmission Date: 20141212
  Serious: Yes (Death)
  Sender: FDA-Public Use
  Company Number: US-JNJFOC-20140601477

PATIENT
  Sex: Male
  Weight: 79 kg

DRUGS (17)
  1. IMBRUVICA [Suspect]
     Indication: MANTLE CELL LYMPHOMA
     Route: 048
     Dates: start: 201402
  2. LEVOTHYROXINE [Concomitant]
  3. FERROUS SULFATE [Concomitant]
  4. METOPROLOL [Concomitant]
  5. SIMVASTATIN [Concomitant]
  6. POTASSIUM [Concomitant]
  7. FLUDROCORTISONE [Concomitant]
     Dosage: HALF TABLET PER DAY
  8. HYDROCORTISONE [Concomitant]
     Dosage: 2 TABLETS TWICE A DAY
  9. B12 [Concomitant]
  10. B1 VITAMIN [Concomitant]
  11. ASPIRIN [Concomitant]
  12. NITROGLYCERIN [Concomitant]
  13. IBUPROFEN [Concomitant]
  14. INHALER NOS [Concomitant]
     Dosage: ONE PUFF THREE TIMES DAILY PRN
  15. MAGNESIUM OXIDE [Concomitant]
  16. VITAMIN D [Concomitant]
     Dosage: 50,000 ONCE A WEEK
  17. BACTRIM DS [Concomitant]

REACTIONS (6)
  - Death [Fatal]
  - Weight decreased [Unknown]
  - Furuncle [Unknown]
  - Dizziness [Unknown]
  - Nausea [Unknown]
  - Anaemia [Unknown]
